FAERS Safety Report 5579955-8 (Version None)
Quarter: 2008Q1

REPORT INFORMATION
  Report Type: 
  Country: None (occurrence: None)
  Receive Date: 20080103
  Receipt Date: 20080103
  Transmission Date: 20080703
  Serious: Yes (Life-Threatening, Hospitalization, Other)
  Sender: FDA-Public Use
  Company Number: PHHO2004US17457

PATIENT
  Age: 63 Year
  Sex: Male
  Weight: 173 kg

DRUGS (15)
  1. VITAMIN D [Concomitant]
     Indication: OSTEOPOROTIC FRACTURE
  2. ZOLEDRONIC ACID [Suspect]
     Indication: OSTEOPOROTIC FRACTURE
     Dosage: DOUBLE-BLIND
     Route: 042
     Dates: start: 20040129
  3. ZOLEDRONIC ACID [Suspect]
     Dosage: 5MG, ONCE YEARLY
  4. CALCIUM CARBONATE [Concomitant]
     Route: 048
  5. COUMADIN [Concomitant]
  6. ZANTAC [Concomitant]
     Dosage: 150 MG, BID
  7. EFFEXOR [Concomitant]
     Dosage: 75 MG, UNK
     Route: 048
  8. KLONOPIN [Concomitant]
     Dosage: 3 MG, UNK
     Route: 048
  9. COLACE [Concomitant]
     Dosage: 300 MG, BID
     Route: 048
  10. NYSTATIN [Concomitant]
     Dosage: UNK, PRN
  11. LACTULOSE [Concomitant]
     Dosage: UNK, QHS
     Route: 048
  12. DULCOLAX [Concomitant]
     Route: 054
  13. TESTOSTERONE CIPIONATE [Concomitant]
     Dosage: 300 MG, UNK
  14. OXYCONTIN [Concomitant]
     Dosage: 100 MG, Q8H
     Route: 048
  15. OXYCODONE HCL [Concomitant]

REACTIONS (22)
  - ARACHNOIDITIS [None]
  - ARTHRALGIA [None]
  - C-REACTIVE PROTEIN INCREASED [None]
  - CENTRAL VENOUS CATHETERISATION [None]
  - CONCOMITANT DISEASE PROGRESSION [None]
  - ERYTHEMA [None]
  - EXTREMITY CONTRACTURE [None]
  - FEELING HOT [None]
  - FIBRIN D DIMER INCREASED [None]
  - HIP SWELLING [None]
  - HYPERSENSITIVITY [None]
  - MEDICAL DEVICE REMOVAL [None]
  - MUSCULOSKELETAL PAIN [None]
  - OSTEOMYELITIS [None]
  - PULMONARY EMBOLISM [None]
  - RED BLOOD CELL SEDIMENTATION RATE INCREASED [None]
  - SHOULDER OPERATION [None]
  - STAPHYLOCOCCAL INFECTION [None]
  - TENDERNESS [None]
  - TOE OPERATION [None]
  - URINARY TRACT INFECTION [None]
  - WHITE BLOOD CELL COUNT INCREASED [None]
